FAERS Safety Report 6080922-9 (Version None)
Quarter: 2009Q1

REPORT INFORMATION
  Report Type: 
  Country: None (occurrence: None)
  Receive Date: 20090217
  Receipt Date: 20090213
  Transmission Date: 20090719
  Serious: No
  Sender: FDA-Public Use
  Company Number: US-B.I. PHARMACEUTICALS,INC./RIDGEFIELD-2007-BP-23308BP

PATIENT
  Sex: Female

DRUGS (1)
  1. MIRAPEX [Suspect]
     Indication: RESTLESS LEGS SYNDROME
     Dosage: .5MG
     Route: 048
     Dates: start: 20070101

REACTIONS (4)
  - CONDITION AGGRAVATED [None]
  - HAIR GROWTH ABNORMAL [None]
  - PARKINSON'S DISEASE [None]
  - WEIGHT INCREASED [None]
